FAERS Safety Report 4320931-0 (Version None)
Quarter: 2004Q1

REPORT INFORMATION
  Report Type: 
  Country: None (occurrence: None)
  Receive Date: 20040318
  Receipt Date: 20040303
  Transmission Date: 20041129
  Serious: Yes (Hospitalization)
  Sender: FDA-Public Use
  Company Number: US068779

PATIENT
  Age: 55 Year
  Sex: Female

DRUGS (11)
  1. ETANERCEPT [Suspect]
     Indication: RHEUMATOID ARTHRITIS
     Dosage: 25 MG, 2 IN 1 WEKS, SC
     Route: 058
     Dates: start: 20030212
  2. KETOPROFEN [Suspect]
     Dosage: 1 IN 1 AS NECESARY, TRAN
     Dates: start: 20010810
  3. LOXOPROFEN [Concomitant]
  4. TEPRENONE [Concomitant]
  5. FLURBIPROFEN [Concomitant]
  6. RANITIDINE HYDROCHLORIDE [Concomitant]
  7. TOCOPHEROL CONCENTRATE CAP [Concomitant]
  8. ESTROGENS CONJUGATED [Concomitant]
  9. MEDROXYPROGESTERONE ACETATE [Concomitant]
  10. VERAPAMIL HYDROCHLORIDE [Concomitant]
  11. BETAHISTINE MESILATE [Concomitant]

REACTIONS (1)
  - SUPRAVENTRICULAR TACHYCARDIA [None]
